FAERS Safety Report 13646685 (Version 2)
Quarter: 2017Q2

REPORT INFORMATION
  Report Type: Spontaneous
  Country: US (occurrence: US)
  Receive Date: 20170613
  Receipt Date: 20170619
  Transmission Date: 20170830
  Serious: No
  Sender: FDA-Public Use
  Company Number: US-PFIZER INC-2017254891

PATIENT
  Age: 62 Year
  Sex: Female

DRUGS (1)
  1. EPINEPHRINE. [Suspect]
     Active Substance: EPINEPHRINE
     Dosage: UNK

REACTIONS (5)
  - Heart rate increased [Unknown]
  - Respiratory rate increased [Unknown]
  - Drug hypersensitivity [Unknown]
  - Formication [Unknown]
  - Nervousness [Unknown]
